FAERS Safety Report 10359700 (Version 1)
Quarter: 2014Q3

REPORT INFORMATION
  Report Type: Spontaneous
  Country: US (occurrence: US)
  Receive Date: 20140804
  Receipt Date: 20140804
  Transmission Date: 20150326
  Serious: No
  Sender: FDA-Public Use
  Company Number: US-PFIZER INC-2014213705

PATIENT
  Age: 44 Year
  Sex: Female
  Weight: 92.97 kg

DRUGS (3)
  1. PROTONIX [Suspect]
     Active Substance: PANTOPRAZOLE SODIUM
     Indication: ABDOMINAL DISCOMFORT
     Dosage: 40 MG, DAILY
     Dates: start: 2013, end: 201407
  2. RELPAX [Suspect]
     Active Substance: ELETRIPTAN HYDROBROMIDE
     Indication: MIGRAINE
     Dosage: UNK, AS NEEDED
     Dates: end: 201407
  3. LYRICA [Suspect]
     Active Substance: PREGABALIN
     Indication: FIBROMYALGIA
     Dosage: 50 MG, 1X/DAY
     Dates: start: 201406, end: 201407

REACTIONS (5)
  - Stress [Unknown]
  - Migraine [Not Recovered/Not Resolved]
  - Activities of daily living impaired [Unknown]
  - Fatigue [Unknown]
  - Communication disorder [Unknown]

NARRATIVE: CASE EVENT DATE: 201407
